FAERS Safety Report 10616771 (Version 1)
Quarter: 2014Q4

REPORT INFORMATION
  Report Type: Spontaneous
  Country: FR (occurrence: FR)
  Receive Date: 20141201
  Receipt Date: 20141201
  Transmission Date: 20150529
  Serious: Yes (Disabling)
  Sender: FDA-Public Use
  Company Number: FR-CELGENE-FRA-2014103292

PATIENT
  Age: 86 Year
  Sex: Female

DRUGS (2)
  1. ZOPHREN [Concomitant]
     Active Substance: ONDANSETRON
     Indication: PRODUCT USED FOR UNKNOWN INDICATION
     Route: 048
     Dates: start: 20140825, end: 20140829
  2. AZACITIDINE. [Suspect]
     Active Substance: AZACITIDINE
     Indication: REFRACTORY ANAEMIA WITH AN EXCESS OF BLASTS
     Dosage: 75 MILLIGRAM/SQ. METER
     Route: 058
     Dates: start: 20140825, end: 20140829

REACTIONS (1)
  - Ischaemic stroke [Recovering/Resolving]

NARRATIVE: CASE EVENT DATE: 20140903
